FAERS Safety Report 5028643-5 (Version None)
Quarter: 2006Q2

REPORT INFORMATION
  Report Type: 
  Country: None (occurrence: None)
  Receive Date: 20060619
  Receipt Date: 20060614
  Transmission Date: 20061013
  Serious: Yes (Death)
  Sender: FDA-Public Use
  Company Number: SE-NOVOPROD-254112

PATIENT
  Age: 6 Year
  Sex: Female
  Weight: 34 kg

DRUGS (5)
  1. NOVOSEVEN [Suspect]
     Indication: HAEMATEMESIS
     Dosage: 72 UG/KG/H, UNK
  2. NOVOSEVEN [Suspect]
     Dosage: 72 UG/KG/H, UNK
  3. NOVOSEVEN [Suspect]
     Dosage: 36 UG/KG/H, UNK
  4. NOVOSEVEN [Suspect]
     Dosage: 72 UG/KG/H, UNK
  5. OCTREOTIDE ACETATE [Concomitant]
     Dosage: 0.15-0.3 UG/KG/H, UNK

REACTIONS (1)
  - MULTI-ORGAN FAILURE [None]
